FAERS Safety Report 14782458 (Version 1)
Quarter: 2018Q2

REPORT INFORMATION
  Report Type: Spontaneous
  Country: MA (occurrence: MA)
  Receive Date: 20180420
  Receipt Date: 20180420
  Transmission Date: 20180711
  Serious: Yes (Death, Hospitalization, Other)
  Sender: FDA-Public Use
  Company Number: MA-MACLEODS PHARMACEUTICALS US LTD-MAC2018012722

PATIENT

DRUGS (4)
  1. ASPIRIN. [Suspect]
     Active Substance: ASPIRIN
     Indication: ANTIPLATELET THERAPY
     Dosage: UNK
     Route: 065
  2. ENOXAPARIN [Suspect]
     Active Substance: ENOXAPARIN
     Indication: ANTIPLATELET THERAPY
     Dosage: UNK
     Route: 065
  3. TENECTEPLASE [Suspect]
     Active Substance: TENECTEPLASE
     Indication: ANTIPLATELET THERAPY
     Dosage: 30 MG, UNK
     Route: 040
  4. CLOPIDOGREL [Suspect]
     Active Substance: CLOPIDOGREL BISULFATE
     Indication: ANTIPLATELET THERAPY
     Dosage: UNK
     Route: 065

REACTIONS (5)
  - Hemiplegia [Fatal]
  - Ischaemic stroke [Fatal]
  - Aphasia [Fatal]
  - Altered state of consciousness [Fatal]
  - Haemorrhagic infarction [Fatal]
